FAERS Safety Report 8425180-2 (Version None)
Quarter: 2012Q2

REPORT INFORMATION
  Report Type: 
  Country: None (occurrence: None)
  Receive Date: 20120531
  Receipt Date: 20120516
  Transmission Date: 20120825
  Serious: Yes (Hospitalization)
  Sender: FDA-Public Use
  Company Number: 2012SP027606

PATIENT
  Age: 71 Year
  Sex: Male

DRUGS (4)
  1. RIBAVIRIN [Suspect]
     Indication: HEPATIC CIRRHOSIS
  2. RIBAVIRIN [Suspect]
     Indication: HEPATITIS C
  3. INTERFERON (MANUFACTURER UNKNOWN) (INTERFERON ALFA-2B) [Suspect]
     Indication: HEPATITIS C
  4. INTERFERON (MANUFACTURER UNKNOWN) (INTERFERON ALFA-2B) [Suspect]
     Indication: HEPATIC CIRRHOSIS

REACTIONS (5)
  - CEREBRAL INFARCTION [None]
  - WEIGHT DECREASED [None]
  - PERITONEAL TUBERCULOSIS [None]
  - NEUTROPENIA [None]
  - OEDEMA PERIPHERAL [None]
